FAERS Safety Report 16372501 (Version 1)
Quarter: 2019Q2

REPORT INFORMATION
  Report Type: Spontaneous
  Country: US (occurrence: US)
  Receive Date: 20190424
  Receipt Date: 20190424
  Transmission Date: 20190711
  Serious: No
  Sender: FDA-Public Use
  Company Number: None

PATIENT
  Age: 84 Year
  Sex: Male
  Weight: 102.51 kg

DRUGS (2)
  1. PROLIA [Suspect]
     Active Substance: DENOSUMAB
     Indication: PROSTATE CANCER
     Dosage: INJECT 60MG SUBCUTANEOUSLY EVERY 6 MONTHS AS DIRECTED
     Route: 058
     Dates: start: 201704
  2. PROLIA [Suspect]
     Active Substance: DENOSUMAB
     Indication: PROSTATE CANCER

REACTIONS (3)
  - Renal disorder [None]
  - Injection site pain [None]
  - Blood potassium decreased [None]
